FAERS Safety Report 13848736 (Version 1)
Quarter: 2017Q3

REPORT INFORMATION
  Report Type: Spontaneous
  Country: TW (occurrence: TW)
  Receive Date: 20170809
  Receipt Date: 20170809
  Transmission Date: 20171127
  Serious: Yes (Life-Threatening, Hospitalization, Other)
  Sender: FDA-Public Use
  Company Number: TW-ORION CORPORATION ORION PHARMA-TREX2017-2339

PATIENT
  Age: 76 Year
  Sex: Male

DRUGS (2)
  1. DICLOFENAC [Concomitant]
     Active Substance: DICLOFENAC
     Route: 065
  2. METHOTREXATE. [Suspect]
     Active Substance: METHOTREXATE
     Indication: PSORIATIC ARTHROPATHY
     Dosage: 15 MG STARTING AND MAXIMAL DOSE
     Route: 065

REACTIONS (5)
  - Drug clearance decreased [Unknown]
  - Epidermal necrosis [Recovered/Resolved]
  - Hypoalbuminaemia [Unknown]
  - Toxicity to various agents [Unknown]
  - Drug level increased [Unknown]
